FAERS Safety Report 10398399 (Version 1)
Quarter: 2014Q1

REPORT INFORMATION
  Report Type: Spontaneous
  Country: US (occurrence: None)
  Receive Date: 20130815
  Receipt Date: 20130815
  Transmission Date: 20141002
  Serious: Yes (Other)
  Sender: FDA-Public Use
  Company Number: ADR-2010-8514

PATIENT
  Age: 29 Year
  Sex: Male

DRUGS (1)
  1. BACLOFEN INTRATHECAL [Suspect]
     Indication: MUSCLE SPASTICITY
     Dosage: 190 MCG/ML

REACTIONS (7)
  - Impaired healing [None]
  - Implant site erosion [None]
  - Implant site pain [None]
  - Pruritus [None]
  - Malaise [None]
  - Sepsis [None]
  - Fatigue [None]
